FAERS Safety Report 9272480 (Version 1)
Quarter: 2013Q2

REPORT INFORMATION
  Report Type: Report from Study
  Country: US (occurrence: US)
  Receive Date: 20130506
  Receipt Date: 20130506
  Transmission Date: 20140414
  Serious: Yes (Other)
  Sender: FDA-Public Use
  Company Number: US-ASTRAZENECA-2013SE29681

PATIENT
  Sex: 0

DRUGS (1)
  1. VANDETANIB [Suspect]
     Indication: THYROID CANCER STAGE IV
     Route: 048

REACTIONS (1)
  - Coronary artery occlusion [Unknown]
